FAERS Safety Report 8193170-3 (Version None)
Quarter: 2012Q1

REPORT INFORMATION
  Report Type: 
  Country: None (occurrence: None)
  Receive Date: 20120308
  Receipt Date: 20120228
  Transmission Date: 20120608
  Serious: Yes (Death, Other)
  Sender: FDA-Public Use
  Company Number: JP-AMGEN-JPNCT2011051840

PATIENT
  Age: 77 Year
  Sex: Male
  Weight: 49 kg

DRUGS (4)
  1. LIPITOR [Concomitant]
     Dosage: UNK
     Route: 048
  2. PREDNISOLONE [Concomitant]
     Indication: INTERSTITIAL LUNG DISEASE
     Route: 048
     Dates: start: 20100524, end: 20101201
  3. PANITUMUMAB [Suspect]
     Indication: COLORECTAL CANCER
     Dosage: 6 MG, Q2WK
     Route: 041
     Dates: start: 20100902, end: 20110106
  4. TRANSAMINE CAP [Concomitant]
     Dosage: UNK
     Route: 049

REACTIONS (6)
  - HYPOCALCAEMIA [None]
  - INTERSTITIAL LUNG DISEASE [None]
  - COLORECTAL CANCER [None]
  - PARONYCHIA [None]
  - HYPOMAGNESAEMIA [None]
  - STOMATITIS [None]
